FAERS Safety Report 9131635 (Version 3)
Quarter: 2013Q1

REPORT INFORMATION
  Report Type: Spontaneous
  Country: US (occurrence: US)
  Receive Date: 20130301
  Receipt Date: 20130326
  Transmission Date: 20140127
  Serious: Yes (Hospitalization, Other)
  Sender: FDA-Public Use
  Company Number: US-JNJFOC-20130111597

PATIENT
  Age: 49 None
  Sex: Female
  Weight: 90.72 kg

DRUGS (11)
  1. REMICADE [Suspect]
     Indication: COLITIS ULCERATIVE
     Dosage: 3RD INFUSION IN HOSPITAL
     Route: 042
  2. REMICADE [Suspect]
     Indication: COLITIS ULCERATIVE
     Dosage: 3RD INFUSION IN HOSPITAL
     Route: 042
     Dates: start: 20130125, end: 20130125
  3. REMICADE [Suspect]
     Indication: COLITIS ULCERATIVE
     Route: 042
     Dates: start: 20121218
  4. REMICADE [Suspect]
     Indication: COLITIS ULCERATIVE
     Dosage: 2ND INFUSION
     Route: 042
     Dates: start: 20130103, end: 20130125
  5. ASACOL [Suspect]
     Indication: COLITIS ULCERATIVE
     Dosage: 3 WEEKS
     Route: 048
     Dates: start: 201208
  6. ASACOL [Suspect]
     Indication: COLITIS ULCERATIVE
     Route: 048
     Dates: start: 20130111
  7. ASACOL [Suspect]
     Indication: COLITIS ULCERATIVE
     Dosage: 400 MG
     Route: 048
     Dates: start: 20130114, end: 20130122
  8. LISINOPRIL [Concomitant]
     Indication: BLOOD PRESSURE
     Route: 048
     Dates: start: 2008
  9. LISINOPRIL [Concomitant]
     Indication: BLOOD PRESSURE
     Route: 048
     Dates: start: 2011
  10. LISINOPRIL [Concomitant]
     Indication: BLOOD PRESSURE
     Route: 048
     Dates: start: 2010
  11. ACYCLOVIR [Concomitant]
     Indication: ORAL HERPES
     Dosage: AS NEEDED
     Route: 065

REACTIONS (15)
  - Migraine [Unknown]
  - Stress [Not Recovered/Not Resolved]
  - Oral herpes [Not Recovered/Not Resolved]
  - Rectal ulcer [Unknown]
  - Drug ineffective [Not Recovered/Not Resolved]
  - Diarrhoea haemorrhagic [Unknown]
  - Fatigue [Not Recovered/Not Resolved]
  - Depression [Not Recovered/Not Resolved]
  - Aspartate aminotransferase increased [Not Recovered/Not Resolved]
  - Alanine aminotransferase increased [Not Recovered/Not Resolved]
  - Renal failure [Unknown]
  - White blood cell count increased [Unknown]
  - Upper respiratory tract infection [Unknown]
  - Abdominal discomfort [Not Recovered/Not Resolved]
  - Diarrhoea [Not Recovered/Not Resolved]
